FAERS Safety Report 15042844 (Version 2)
Quarter: 2020Q3

REPORT INFORMATION
  Report Type: Spontaneous
  Country: SI (occurrence: SI)
  Receive Date: 20180621
  Receipt Date: 20180712
  Transmission Date: 20201105
  Serious: Yes (Other)
  Sender: FDA-Public Use
  Company Number: PHHY2018SI021051

PATIENT
  Sex: Male

DRUGS (2)
  1. INTERFERON BETA?1B [Suspect]
     Active Substance: INTERFERON BETA-1B
     Indication: RELAPSING-REMITTING MULTIPLE SCLEROSIS
     Dosage: UNK
     Route: 065
     Dates: start: 200811, end: 201210
  2. FINGOLIMOD. [Suspect]
     Active Substance: FINGOLIMOD
     Indication: PRODUCT USED FOR UNKNOWN INDICATION
     Dosage: UNK
     Route: 065
     Dates: start: 201210

REACTIONS (6)
  - Lymphopenia [Not Recovered/Not Resolved]
  - Inflammatory myofibroblastic tumour [Unknown]
  - Condition aggravated [Unknown]
  - Balance disorder [Recovered/Resolved]
  - Hepatic enzyme increased [Unknown]
  - Gait disturbance [Recovered/Resolved]

NARRATIVE: CASE EVENT DATE: 201210
